FAERS Safety Report 10803813 (Version 2)
Quarter: 2018Q3

REPORT INFORMATION
  Report Type: Report from Study
  Country: US (occurrence: US)
  Receive Date: 20150217
  Receipt Date: 20180911
  Transmission Date: 20181010
  Serious: Yes (Death, Hospitalization)
  Sender: FDA-Public Use
  Company Number: US-ACTELION-A-NJ2015-112734

PATIENT
  Age: 74 Year
  Sex: Female

DRUGS (27)
  1. FLUCONAZOLE. [Concomitant]
     Active Substance: FLUCONAZOLE
     Dosage: 100 MG, UNK
  2. SIMBRINZA [Concomitant]
     Active Substance: BRIMONIDINE TARTRATE\BRINZOLAMIDE
  3. DILTIAZEM. [Concomitant]
     Active Substance: DILTIAZEM
  4. METOLAZONE. [Concomitant]
     Active Substance: METOLAZONE
  5. OMEPRAZOLE. [Concomitant]
     Active Substance: OMEPRAZOLE
  6. ALPHAGAN P [Concomitant]
     Active Substance: BRIMONIDINE TARTRATE
  7. ALPRAZOLAM. [Concomitant]
     Active Substance: ALPRAZOLAM
  8. CITALOPRAM [Concomitant]
     Active Substance: CITALOPRAM HYDROBROMIDE
  9. TRACLEER [Suspect]
     Active Substance: BOSENTAN
     Indication: PULMONARY ARTERIAL HYPERTENSION
     Dosage: 125 MG, UNK
     Route: 048
  10. CEFTIN [Concomitant]
     Active Substance: CEFUROXIME AXETIL
  11. LUMIGAN [Concomitant]
     Active Substance: BIMATOPROST
  12. GLIPIZIDE. [Concomitant]
     Active Substance: GLIPIZIDE
  13. AVELOX [Concomitant]
     Active Substance: MOXIFLOXACIN HYDROCHLORIDE
  14. DILAUDID [Concomitant]
     Active Substance: HYDROMORPHONE HYDROCHLORIDE
     Dosage: 2 MG, UNK
  15. FERROUS SULFATE. [Concomitant]
     Active Substance: FERROUS SULFATE
  16. ADVAIR HFA [Concomitant]
     Active Substance: FLUTICASONE PROPIONATE\SALMETEROL XINAFOATE
  17. VITAMIN B12 [Concomitant]
     Active Substance: CYANOCOBALAMIN
  18. NASONEX [Concomitant]
     Active Substance: MOMETASONE FUROATE
  19. VENTOLIN [Concomitant]
     Active Substance: ALBUTEROL SULFATE
  20. FUROSEMIDE. [Concomitant]
     Active Substance: FUROSEMIDE
  21. XALATAN [Concomitant]
     Active Substance: LATANOPROST
  22. PATADAY [Concomitant]
     Active Substance: OLOPATADINE HYDROCHLORIDE
  23. ASPIRIN. [Concomitant]
     Active Substance: ASPIRIN
  24. PRED FORTE [Concomitant]
     Active Substance: PREDNISOLONE ACETATE
  25. PREDNISONE. [Concomitant]
     Active Substance: PREDNISONE
  26. MEDROL [Concomitant]
     Active Substance: METHYLPREDNISOLONE
  27. KLOR?CON [Concomitant]
     Active Substance: POTASSIUM CHLORIDE

REACTIONS (3)
  - Influenza [Unknown]
  - Dyspnoea [Unknown]
  - Death [Fatal]

NARRATIVE: CASE EVENT DATE: 20150107
